FAERS Safety Report 9928412 (Version 1)
Quarter: 2014Q1

REPORT INFORMATION
  Report Type: Spontaneous
  Country: US (occurrence: None)
  Receive Date: 20140226
  Receipt Date: 20140226
  Transmission Date: 20141002
  Serious: Yes (Life-Threatening)
  Sender: FDA-Public Use
  Company Number: None

PATIENT
  Age: 31 Year
  Sex: Male

DRUGS (3)
  1. ZOLPIDEM ER [Suspect]
     Indication: INSOMNIA
     Route: 048
     Dates: start: 20140114, end: 20140121
  2. ZOLPIDEM ER [Suspect]
     Indication: DEPRESSION
     Route: 048
     Dates: start: 20140114, end: 20140121
  3. ZOLOFT (SERTRALINE) [Concomitant]

REACTIONS (3)
  - Somnambulism [None]
  - Amnesia [None]
  - Road traffic accident [None]
